FAERS Safety Report 8343122-5 (Version None)
Quarter: 2012Q2

REPORT INFORMATION
  Report Type: 
  Country: None (occurrence: None)
  Receive Date: 20120504
  Receipt Date: 20120504
  Transmission Date: 20120825
  Serious: No
  Sender: FDA-Public Use
  Company Number: None

PATIENT
  Age: 46 Year
  Sex: Female

DRUGS (1)
  1. ZOLPIDEM [Suspect]
     Indication: INSOMNIA
     Dosage: 12.5MG QHS ORAL
     Route: 048
     Dates: start: 20110830, end: 20111011

REACTIONS (2)
  - DRUG INEFFECTIVE [None]
  - INSOMNIA [None]
